FAERS Safety Report 4278310-0 (Version None)
Quarter: 2004Q1

REPORT INFORMATION
  Report Type: 
  Country: None (occurrence: None)
  Receive Date: 20040123
  Receipt Date: 20040115
  Transmission Date: 20041129
  Serious: Yes (Hospitalization, Other)
  Sender: FDA-Public Use
  Company Number: US-BRISTOL-MYERS SQUIBB COMPANY-12479754

PATIENT
  Age: 21 Year
  Sex: Female
  Weight: 68 kg

DRUGS (5)
  1. ABILIFY [Suspect]
     Indication: PSYCHOTIC DISORDER
     Dosage: ^ALL AT ONE TIME^
     Route: 048
     Dates: start: 20040109, end: 20040109
  2. DEPAKOTE [Concomitant]
     Dosage: ^FOR A COUPLE OF YEARS^
  3. HALDOL [Concomitant]
     Dosage: ^FOR A COUPLE OF YEARS^
  4. COGENTIN [Concomitant]
     Dosage: ^FOR A COUPLE OF YEARS^
  5. LITHOBID [Concomitant]

REACTIONS (6)
  - CONVERSION DISORDER [None]
  - DEPRESSION [None]
  - OVERDOSE [None]
  - SUICIDAL IDEATION [None]
  - SUICIDE ATTEMPT [None]
  - TREMOR [None]
